FAERS Safety Report 15780308 (Version 1)
Quarter: 2019Q1

REPORT INFORMATION
  Report Type: Spontaneous
  Country: GB (occurrence: GB)
  Receive Date: 20190102
  Receipt Date: 20190102
  Transmission Date: 20190417
  Serious: Yes (Death)
  Sender: FDA-Public Use
  Company Number: GB-CONCORDIA PHARMACEUTICALS INC.-E2B_00018037

PATIENT
  Age: 66 Year
  Sex: Male

DRUGS (14)
  1. ATORVASTATIN [Concomitant]
     Active Substance: ATORVASTATIN
  2. DIGOXIN. [Concomitant]
     Active Substance: DIGOXIN
  3. SECURON SR [Concomitant]
     Active Substance: VERAPAMIL HYDROCHLORIDE
  4. LEVOTHYROXINE. [Concomitant]
     Active Substance: LEVOTHYROXINE
  5. RAMIPRIL. [Concomitant]
     Active Substance: RAMIPRIL
  6. METOCLOPRAMIDE. [Concomitant]
     Active Substance: METOCLOPRAMIDE
  7. ESOMEPRAZOLE. [Concomitant]
     Active Substance: ESOMEPRAZOLE MAGNESIUM
  8. GLYCERYL TRINITRATE [Concomitant]
     Active Substance: NITROGLYCERIN
  9. TAMSULOSIN [Concomitant]
     Active Substance: TAMSULOSIN
  10. BECLOMETASONE [Concomitant]
     Active Substance: BECLOMETHASONE DIPROPIONATE
  11. DOXAZOSIN [Concomitant]
     Active Substance: DOXAZOSIN\DOXAZOSIN MESYLATE
  12. GLICLAZIDE [Concomitant]
     Active Substance: GLICLAZIDE
  13. PARACETAMOL [Concomitant]
     Active Substance: ACETAMINOPHEN
  14. PREDNISOLONE. [Suspect]
     Active Substance: PREDNISOLONE
     Indication: METASTATIC RENAL CELL CARCINOMA
     Route: 048

REACTIONS (1)
  - Pancreatitis [Fatal]
